FAERS Safety Report 20050254 (Version 2)
Quarter: 2021Q4

REPORT INFORMATION
  Report Type: Spontaneous
  Country: US (occurrence: US)
  Receive Date: 20211109
  Receipt Date: 20211209
  Transmission Date: 20220303
  Serious: No
  Sender: FDA-Public Use
  Company Number: US-BAUSCH-BL-2021-036664

PATIENT
  Age: 52 Year
  Sex: Female
  Weight: 71.732 kg

DRUGS (3)
  1. APLENZIN [Suspect]
     Active Substance: BUPROPION HYDROBROMIDE
     Indication: Generalised anxiety disorder
     Route: 065
     Dates: start: 20211004
  2. APLENZIN [Suspect]
     Active Substance: BUPROPION HYDROBROMIDE
     Indication: Major depression
  3. APLENZIN [Suspect]
     Active Substance: BUPROPION HYDROBROMIDE
     Indication: Post-traumatic stress disorder

REACTIONS (1)
  - Rash [Recovered/Resolved]

NARRATIVE: CASE EVENT DATE: 20211103
